FAERS Safety Report 8228761 (Version 2)
Quarter: 2013Q2

REPORT INFORMATION
  Report Type: Spontaneous
  Country: US (occurrence: None)
  Receive Date: 20111025
  Receipt Date: 20130416
  Transmission Date: 20140414
  Serious: Yes (Other)
  Sender: FDA-Public Use
  Company Number: 2011BH024728

PATIENT
  Age: 14 Month
  Sex: Male
  Weight: 11.36 kg

DRUGS (2)
  1. ADVATE [Suspect]
     Indication: FACTOR VIII DEFICIENCY
     Dosage: 428.5714 DOSAGE FORMS (1000 DOSAGE FORMS,3 IN 1 WK)
     Route: 042
     Dates: start: 20080204
  2. AMICAR (AMINOCAPROIC ACID) [Concomitant]

REACTIONS (4)
  - FACTOR VIII INHIBITION [None]
  - HEAD INJURY [None]
  - MOUTH HAEMORRHAGE [None]
  - HAEMORRHAGE [None]
